FAERS Safety Report 5063574-6 (Version None)
Quarter: 2006Q3

REPORT INFORMATION
  Report Type: 
  Country: None (occurrence: None)
  Receive Date: 20060727
  Receipt Date: 20060717
  Transmission Date: 20061208
  Serious: Yes (Death)
  Sender: FDA-Public Use
  Company Number: FR-ROCHE-455840

PATIENT
  Age: 75 Year
  Sex: Male
  Weight: 78 kg

DRUGS (1)
  1. XELODA [Suspect]
     Route: 048
     Dates: start: 20060616, end: 20060629

REACTIONS (5)
  - DIARRHOEA [None]
  - NEUTROPENIA [None]
  - SHOCK [None]
  - THROMBOCYTOPENIA [None]
  - VOMITING [None]
